FAERS Safety Report 14694208 (Version 3)
Quarter: 2019Q4

REPORT INFORMATION
  Report Type: Spontaneous
  Country: US (occurrence: US)
  Receive Date: 20180329
  Receipt Date: 20191024
  Transmission Date: 20200122
  Serious: Yes (Other)
  Sender: FDA-Public Use
  Company Number: US-SUPERNUS PHARMACEUTICALS, INC.-2018SUP00088

PATIENT
  Sex: Female
  Weight: 55.33 kg

DRUGS (22)
  1. TROKENDI XR [Suspect]
     Active Substance: TOPIRAMATE
     Indication: SIMPLE PARTIAL SEIZURES
     Dosage: 50 MG, 1X/DAY AT BEDTIME
     Route: 048
     Dates: start: 2018, end: 2018
  2. TROKENDI XR [Suspect]
     Active Substance: TOPIRAMATE
     Indication: FOCAL DYSCOGNITIVE SEIZURES
     Dosage: 400 MG, 1X/DAY AT BEDTIME
     Dates: start: 2019, end: 2019
  3. TROKENDI XR [Suspect]
     Active Substance: TOPIRAMATE
     Dosage: 200 MG, 1X/DAY AT BEDTIME
     Route: 048
     Dates: start: 201905, end: 2019
  4. VITAMIN D [Concomitant]
     Active Substance: VITAMIN D NOS
  5. COQ10 [Concomitant]
     Active Substance: UBIDECARENONE
  6. BIOTIN [Concomitant]
     Active Substance: BIOTIN
     Dosage: UNK
  7. FYCOMPA [Concomitant]
     Active Substance: PERAMPANEL
     Dosage: 2 UNK
     Dates: start: 2018
  8. TROKENDI XR [Suspect]
     Active Substance: TOPIRAMATE
     Indication: FOCAL DYSCOGNITIVE SEIZURES
     Dosage: 100 MG, 1X/DAY AT BEDTIME
     Dates: start: 2018, end: 2018
  9. TROKENDI XR [Suspect]
     Active Substance: TOPIRAMATE
     Indication: SIMPLE PARTIAL SEIZURES
     Dosage: 200 MG, 1X/DAY AT BEDTIME
     Route: 048
     Dates: end: 2019
  10. FYCOMPA [Concomitant]
     Active Substance: PERAMPANEL
     Dosage: 6 UNK
  11. TROKENDI XR [Suspect]
     Active Substance: TOPIRAMATE
     Dosage: 250 TO 300 MG, 1X/DAY AT BEDTIME
     Dates: start: 2018
  12. SYNTHROID [Concomitant]
     Active Substance: LEVOTHYROXINE SODIUM
  13. UNSPECIFIED STOOL SOFTENER [Concomitant]
  14. SYNTOL AMD [Concomitant]
  15. MAGNESIUM [Concomitant]
     Active Substance: MAGNESIUM
  16. SENOKOT [Concomitant]
     Active Substance: SENNOSIDES
  17. FYCOMPA [Concomitant]
     Active Substance: PERAMPANEL
     Dosage: 4 UNK
  18. TROKENDI XR [Suspect]
     Active Substance: TOPIRAMATE
     Dosage: 200 MG, 1X/DAY AT BEDTIME
     Dates: start: 2018, end: 2018
  19. ZOLOFT [Suspect]
     Active Substance: SERTRALINE HYDROCHLORIDE
     Indication: VESTIBULAR DISORDER
     Dosage: UNK
     Dates: end: 2018
  20. KLONOPIN [Concomitant]
     Active Substance: CLONAZEPAM
  21. RED YEAST RICE [Concomitant]
     Active Substance: DIETARY SUPPLEMENT
  22. FYCOMPA [Concomitant]
     Active Substance: PERAMPANEL
     Dosage: 8 UNK

REACTIONS (19)
  - Visual impairment [Not Recovered/Not Resolved]
  - Nausea [Not Recovered/Not Resolved]
  - Psychotic disorder [Not Recovered/Not Resolved]
  - Cystitis [Unknown]
  - Gait inability [Not Recovered/Not Resolved]
  - Seizure [Unknown]
  - Muscle spasms [Not Recovered/Not Resolved]
  - Thinking abnormal [Not Recovered/Not Resolved]
  - Fall [Not Recovered/Not Resolved]
  - Irritability [Not Recovered/Not Resolved]
  - Anger [Not Recovered/Not Resolved]
  - Night blindness [Not Recovered/Not Resolved]
  - Aggression [Not Recovered/Not Resolved]
  - Screaming [Not Recovered/Not Resolved]
  - Weight increased [Unknown]
  - Depressed mood [Not Recovered/Not Resolved]
  - Insomnia [Not Recovered/Not Resolved]
  - Pain [Not Recovered/Not Resolved]
  - Agitation [Not Recovered/Not Resolved]

NARRATIVE: CASE EVENT DATE: 2018
